FAERS Safety Report 15923103 (Version 1)
Quarter: 2019Q1

REPORT INFORMATION
  Report Type: Spontaneous
  Country: PL (occurrence: PL)
  Receive Date: 20190206
  Receipt Date: 20190206
  Transmission Date: 20190417
  Serious: Yes (Death)
  Sender: FDA-Public Use
  Company Number: PL-TEVA-2019-PL-1008550

PATIENT
  Age: 8 Year
  Sex: Female
  Weight: 23 kg

DRUGS (3)
  1. VINCRISTINE [Suspect]
     Active Substance: VINCRISTINE
     Indication: ACUTE LYMPHOCYTIC LEUKAEMIA
     Route: 042
     Dates: start: 20181030, end: 20181113
  2. DAUNORUBICIN [Suspect]
     Active Substance: DAUNORUBICIN
     Indication: ACUTE LYMPHOCYTIC LEUKAEMIA
     Route: 042
     Dates: start: 20181030, end: 20181113
  3. ONCASPAR [Suspect]
     Active Substance: PEGASPARGASE
     Indication: ACUTE LYMPHOCYTIC LEUKAEMIA
     Dosage: DOSE: 2500 IU/M2
     Route: 042
     Dates: start: 20181103

REACTIONS (5)
  - Pancreatitis acute [Fatal]
  - Multiple organ dysfunction syndrome [Fatal]
  - Neuropathy peripheral [Fatal]
  - Seizure [Fatal]
  - Posterior reversible encephalopathy syndrome [Fatal]

NARRATIVE: CASE EVENT DATE: 20181202
